FAERS Safety Report 16296145 (Version 1)
Quarter: 2019Q2

REPORT INFORMATION
  Report Type: Spontaneous
  Country: US (occurrence: US)
  Receive Date: 20190510
  Receipt Date: 20190510
  Transmission Date: 20190711
  Serious: No
  Sender: FDA-Public Use
  Company Number: US-TEVA-2019-US-1046293

PATIENT
  Sex: Female

DRUGS (1)
  1. LIDOCAINE W/PRILOCAINE [Suspect]
     Active Substance: LIDOCAINE\PRILOCAINE
     Indication: PAIN
     Dosage: DOSE STRENGTH:  2.5/2.5%
     Route: 065
     Dates: start: 20190430

REACTIONS (2)
  - Product use complaint [Unknown]
  - Application site pain [Unknown]

NARRATIVE: CASE EVENT DATE: 20190430
